FAERS Safety Report 23465228 (Version 1)
Quarter: 2024Q1

REPORT INFORMATION
  Report Type: Spontaneous
  Country: IN (occurrence: IN)
  Receive Date: 20240201
  Receipt Date: 20240201
  Transmission Date: 20240410
  Serious: Yes (Hospitalization)
  Sender: FDA-Public Use
  Company Number: IN-Nexus Pharma-000249

PATIENT
  Age: 32 Year
  Sex: Male

DRUGS (11)
  1. COLISTIMETHATE SODIUM [Suspect]
     Active Substance: COLISTIMETHATE SODIUM
     Indication: Klebsiella infection
  2. METRONIDAZOLE [Concomitant]
     Active Substance: METRONIDAZOLE
     Indication: Klebsiella infection
  3. MEROPENEM [Concomitant]
     Active Substance: MEROPENEM
     Indication: Klebsiella infection
  4. SULBACTAM [Concomitant]
     Active Substance: SULBACTAM
  5. CEFOPERAZONE [Concomitant]
     Active Substance: CEFOPERAZONE
  6. VECURONIUM [Concomitant]
     Active Substance: VECURONIUM BROMIDE
  7. MIDAZOLAM [Concomitant]
     Active Substance: MIDAZOLAM
  8. FENTANYL [Concomitant]
     Active Substance: FENTANYL\FENTANYL CITRATE
  9. COLISTIMETHATE SODIUM [Suspect]
     Active Substance: COLISTIMETHATE SODIUM
     Indication: Pseudomonas infection
  10. MEROPENEM [Concomitant]
     Active Substance: MEROPENEM
     Indication: Pseudomonas infection
  11. METRONIDAZOLE [Concomitant]
     Active Substance: METRONIDAZOLE
     Indication: Pseudomonas infection

REACTIONS (1)
  - Bartter^s syndrome [Unknown]
